FAERS Safety Report 8455119-5 (Version None)
Quarter: 2012Q2

REPORT INFORMATION
  Report Type: 
  Country: None (occurrence: None)
  Receive Date: 20120614
  Receipt Date: 20120608
  Transmission Date: 20120825
  Serious: Yes (Disabling)
  Sender: FDA-Public Use
  Company Number: USA/USA/12/0024640

PATIENT
  Age: 66 Year
  Sex: Female
  Weight: 90.7194 kg

DRUGS (6)
  1. CALCIUM CARBONATE [Concomitant]
  2. LEVOTHYROXINE SODIUM [Concomitant]
  3. CIPROFLOXACIN [Suspect]
     Indication: URINARY TRACT INFECTION
     Dosage: SEE IMAGE
     Dates: start: 20110501, end: 20110501
  4. CIPROFLOXACIN [Suspect]
     Indication: URINARY TRACT INFECTION
     Dosage: SEE IMAGE
     Dates: start: 20120101, end: 20120101
  5. MULTIVITAMIN (VIGRAN) [Concomitant]
  6. VITAMIN D (ERGCALCIFEROL) [Concomitant]

REACTIONS (3)
  - ARTHROPATHY [None]
  - ACTIVITIES OF DAILY LIVING IMPAIRED [None]
  - TENDONITIS [None]
